FAERS Safety Report 9314215 (Version 3)
Quarter: 2013Q3

REPORT INFORMATION
  Report Type: Report from Study
  Country: CA (occurrence: CA)
  Receive Date: 20130529
  Receipt Date: 20130813
  Transmission Date: 20140515
  Serious: Yes (Hospitalization)
  Sender: FDA-Public Use
  Company Number: CA-JNJFOC-20130515886

PATIENT
  Age: 80 Year
  Sex: Female
  Weight: 62.5 kg

DRUGS (5)
  1. REMICADE [Suspect]
     Indication: RHEUMATOID ARTHRITIS
     Route: 042
     Dates: start: 20130612
  2. REMICADE [Suspect]
     Indication: RHEUMATOID ARTHRITIS
     Dosage: 40 DOSE IN SERIES
     Route: 042
     Dates: start: 20080925, end: 20130411
  3. METHOTREXATE [Concomitant]
     Indication: RHEUMATOID ARTHRITIS
     Route: 058
  4. ALENDRONATE [Concomitant]
     Indication: OSTEOPOROSIS
     Route: 065
  5. TYLENOL 3 [Concomitant]
     Indication: RHEUMATOID ARTHRITIS
     Dosage: 2-3 PER WEEK
     Route: 048

REACTIONS (2)
  - Fall [Unknown]
  - Femoral neck fracture [Recovered/Resolved]
